FAERS Safety Report 8990513 (Version 3)
Quarter: 2013Q1

REPORT INFORMATION
  Report Type: Spontaneous
  Country: US (occurrence: US)
  Receive Date: 20121228
  Receipt Date: 20130110
  Transmission Date: 20140127
  Serious: Yes (Other)
  Sender: FDA-Public Use
  Company Number: US-GILEAD-2012-0062194

PATIENT
  Age: 79 Year
  Sex: Female

DRUGS (3)
  1. LETAIRIS [Suspect]
     Indication: PULMONARY HYPERTENSION
     Route: 048
     Dates: start: 20120911, end: 20120917
  2. LETAIRIS [Suspect]
     Indication: DIASTOLIC DYSFUNCTION
  3. OXYGEN [Concomitant]

REACTIONS (7)
  - Diastolic dysfunction [Recovered/Resolved]
  - Fluid retention [Unknown]
  - Cardiac failure [Unknown]
  - Oxygen saturation decreased [Recovered/Resolved]
  - Dyspnoea [Recovered/Resolved]
  - Generalised oedema [Recovered/Resolved]
  - Oedema [Recovered/Resolved]
